FAERS Safety Report 9243889 (Version 2)
Quarter: 2013Q2

REPORT INFORMATION
  Report Type: Spontaneous
  Country: CA (occurrence: CA)
  Receive Date: 20130422
  Receipt Date: 20130503
  Transmission Date: 20140414
  Serious: Yes (Hospitalization)
  Sender: FDA-Public Use
  Company Number: CA-AMGEN-CANSP2013027671

PATIENT
  Age: 60 Year
  Sex: Female
  Weight: 64 kg

DRUGS (4)
  1. NEULASTA [Suspect]
     Indication: PROPHYLAXIS
     Dosage: 6 MG, X1 DAY
     Route: 058
     Dates: start: 20130403, end: 20130403
  2. 5 FU [Suspect]
     Indication: BREAST CANCER
     Dosage: UNK
     Route: 042
     Dates: start: 20130402, end: 20130402
  3. EPIRUBICIN [Suspect]
     Indication: BREAST CANCER
     Dosage: UNK
     Route: 042
     Dates: start: 20130402, end: 20130402
  4. CYCLOPHOSPHAMIDE [Suspect]
     Indication: BREAST CANCER
     Dosage: UNK
     Route: 042
     Dates: start: 20130402, end: 20130402

REACTIONS (3)
  - Sinusitis [Unknown]
  - Febrile neutropenia [Recovered/Resolved]
  - Drug ineffective [Unknown]
